FAERS Safety Report 7519436-5 (Version None)
Quarter: 2011Q2

REPORT INFORMATION
  Report Type: 
  Country: None (occurrence: None)
  Receive Date: 20110602
  Receipt Date: 20110518
  Transmission Date: 20111010
  Serious: Yes (Death, Other)
  Sender: FDA-Public Use
  Company Number: US-JUTA GMBH-2011-07423

PATIENT
  Age: 41 Year
  Sex: Male

DRUGS (4)
  1. HYDROCODONE BITARTRATE AND ACETAMINOPHEN [Suspect]
     Indication: PRODUCT USED FOR UNKNOWN INDICATION
     Dosage: UNK
     Route: 048
  2. TRAMADOL HCL [Suspect]
     Indication: PRODUCT USED FOR UNKNOWN INDICATION
     Dosage: UNK
     Route: 048
  3. CLONAZEPAM [Suspect]
     Indication: PRODUCT USED FOR UNKNOWN INDICATION
     Dosage: UNK
     Route: 048
  4. PROPOXYPHENE HYDROCHLORIDE [Suspect]
     Indication: PRODUCT USED FOR UNKNOWN INDICATION
     Dosage: UNK
     Route: 048

REACTIONS (10)
  - SKULL FRACTURE [None]
  - LACERATION [None]
  - TOXICITY TO VARIOUS AGENTS [None]
  - TRAUMATIC BRAIN INJURY [None]
  - OVERDOSE [None]
  - FALL [None]
  - ECCHYMOSIS [None]
  - SUBARACHNOID HAEMORRHAGE [None]
  - RESPIRATORY DEPRESSION [None]
  - CONVULSION [None]
